FAERS Safety Report 4379043-2 (Version None)
Quarter: 2004Q2

REPORT INFORMATION
  Report Type: 
  Country: None (occurrence: None)
  Receive Date: 20040601
  Receipt Date: 20040330
  Transmission Date: 20050107
  Serious: No
  Sender: FDA-Public Use
  Company Number: WAES 0404USA00017

PATIENT
  Age: 55 Year
  Sex: Female

DRUGS (2)
  1. ZETIA [Suspect]
     Dosage: 10 MG/DAILY/PO
     Route: 048
  2. ADVICOR [Concomitant]

REACTIONS (4)
  - DIZZINESS [None]
  - EXCORIATION [None]
  - FALL [None]
  - FATIGUE [None]
